FAERS Safety Report 13158528 (Version 3)
Quarter: 2017Q1

REPORT INFORMATION
  Report Type: Spontaneous
  Country: US (occurrence: US)
  Receive Date: 20170127
  Receipt Date: 20170331
  Transmission Date: 20170428
  Serious: Yes (Hospitalization, Other)
  Sender: FDA-Public Use
  Company Number: US-009507513-1701USA010928

PATIENT
  Age: 45 Year
  Sex: Female

DRUGS (3)
  1. CELESTONE SOLUSPAN [Suspect]
     Active Substance: BETAMETHASONE ACETATE\BETAMETHASONE SODIUM PHOSPHATE
     Indication: BACK PAIN
     Dosage: 12 MG, UNK
     Route: 037
  2. LIDOCAINE (+) METHYLPREDNISOLONE [Suspect]
     Active Substance: LIDOCAINE\METHYLPREDNISOLONE
     Indication: BACK PAIN
     Dosage: 2 ML, UNK
     Route: 037
  3. SODIUM CHLORIDE. [Concomitant]
     Active Substance: SODIUM CHLORIDE
     Dosage: UNK

REACTIONS (3)
  - Pneumocephalus [Recovered/Resolved]
  - Incorrect route of drug administration [Unknown]
  - Meningitis chemical [Recovered/Resolved]
